FAERS Safety Report 6552806-0 (Version None)
Quarter: 2010Q1

REPORT INFORMATION
  Report Type: 
  Country: None (occurrence: None)
  Receive Date: 20100126
  Receipt Date: 20100121
  Transmission Date: 20100710
  Serious: Yes (Other)
  Sender: FDA-Public Use
  Company Number: CA-MERCK-1001CAN00192

PATIENT
  Age: 40 Year
  Sex: Female

DRUGS (12)
  1. INVANZ [Suspect]
     Route: 042
  2. AMITRIPTYLINE HYDROCHLORIDE [Concomitant]
     Route: 048
  3. CYCLOBENZAPRINE HYDROCHLORIDE [Concomitant]
     Route: 048
  4. VENLAFAXINE HYDROCHLORIDE [Concomitant]
     Route: 048
  5. FLUCONAZOLE [Concomitant]
     Route: 048
  6. PREGABALIN [Concomitant]
     Route: 048
  7. NAPROXEN [Concomitant]
     Route: 048
  8. PANTOPRAZOLE SODIUM [Concomitant]
     Route: 048
  9. PAROXETINE [Concomitant]
     Route: 048
  10. QUETIAPINE FUMARATE [Concomitant]
     Route: 048
  11. RISPERIDONE [Concomitant]
     Route: 048
  12. TRAMADOL HYDROCHLORIDE [Concomitant]
     Route: 048

REACTIONS (3)
  - ALANINE AMINOTRANSFERASE INCREASED [None]
  - ASPARTATE AMINOTRANSFERASE INCREASED [None]
  - GAMMA-GLUTAMYLTRANSFERASE INCREASED [None]
